FAERS Safety Report 5205712-8 (Version None)
Quarter: 2007Q1

REPORT INFORMATION
  Report Type: 
  Country: None (occurrence: None)
  Receive Date: 20070105
  Receipt Date: 20070105
  Transmission Date: 20070707
  Serious: Yes (Hospitalization)
  Sender: FDA-Public Use
  Company Number: None

PATIENT
  Sex: Male
  Weight: 79.3795 kg

DRUGS (16)
  1. WARFARIN SODIUM [Suspect]
     Indication: CORONARY ARTERY DILATATION
     Dosage: 2.5 MG DAILY PO
     Route: 048
     Dates: start: 20040101, end: 20060101
  2. . [Concomitant]
  3. VARDENAFIL [Concomitant]
  4. KETOCONAZOLE [Concomitant]
  5. OXYBUTININ [Concomitant]
  6. SIMVASTATIN [Concomitant]
  7. METOPROLOL SUCCINATE [Concomitant]
  8. FELODIPINE [Concomitant]
  9. FOSINOPRIL SODIUM [Concomitant]
  10. DOXAZOSIN MESYLATE [Concomitant]
  11. ALLOPURINOL SODIUM [Concomitant]
  12. PSEUDOEPHEDRINE HCL [Concomitant]
  13. DESONIDE [Concomitant]
  14. VITAMIN C AND B [Concomitant]
  15. OMEPRAZOLE [Concomitant]
  16. KETOCONAZOLE [Concomitant]

REACTIONS (3)
  - DIVERTICULUM [None]
  - GASTROINTESTINAL HAEMORRHAGE [None]
  - INTERNATIONAL NORMALISED RATIO INCREASED [None]
